FAERS Safety Report 7430652-3 (Version None)
Quarter: 2011Q2

REPORT INFORMATION
  Report Type: 
  Country: None (occurrence: None)
  Receive Date: 20110421
  Receipt Date: 20110407
  Transmission Date: 20111010
  Serious: Yes (Life-Threatening)
  Sender: FDA-Public Use
  Company Number: ES-CELGENEUS-144-20785-11022485

PATIENT
  Sex: Male
  Weight: 72 kg

DRUGS (11)
  1. VELCADE [Suspect]
     Dosage: 2.2 MILLIGRAM
     Route: 051
     Dates: end: 20100713
  2. VALACICLOVIR [Concomitant]
     Route: 065
  3. CALCIO [Concomitant]
     Route: 065
  4. SPIRIVA [Concomitant]
     Route: 065
  5. COTRIM [Concomitant]
     Route: 065
  6. OMEPRAZOLE [Concomitant]
     Route: 065
  7. ALLOPURINOL [Concomitant]
     Route: 065
  8. PARACETAMOL [Concomitant]
     Route: 065
  9. SERETIDE [Concomitant]
     Route: 065
  10. THALIDOMIDE [Suspect]
     Indication: MULTIPLE MYELOMA
     Dosage: 100 MILLIGRAM
     Route: 048
     Dates: start: 20090323, end: 20100705
  11. VELCADE [Suspect]
     Indication: MULTIPLE MYELOMA
     Dosage: 2.2 MILLIGRAM
     Route: 051
     Dates: start: 20090323, end: 20100416

REACTIONS (1)
  - ACUTE MYELOID LEUKAEMIA [None]
